FAERS Safety Report 6538502-4 (Version None)
Quarter: 2010Q1

REPORT INFORMATION
  Report Type: 
  Country: None (occurrence: None)
  Receive Date: 20100114
  Receipt Date: 20100112
  Transmission Date: 20100710
  Serious: Yes (Hospitalization)
  Sender: FDA-Public Use
  Company Number: FR-MERCK-0903FRA00021

PATIENT
  Age: 22 Year
  Sex: Male

DRUGS (4)
  1. PROPECIA [Suspect]
     Indication: ALOPECIA
     Route: 048
     Dates: start: 20060101, end: 20090101
  2. PROPECIA [Suspect]
     Route: 048
     Dates: start: 20090401, end: 20090421
  3. TRANEXAMIC ACID [Concomitant]
     Route: 065
     Dates: start: 20090101
  4. PENICILLIN V [Concomitant]
     Route: 065
     Dates: start: 20090101

REACTIONS (2)
  - ANGIOEDEMA [None]
  - URTICARIA [None]
